FAERS Safety Report 10728563 (Version 3)
Quarter: 2015Q1

REPORT INFORMATION
  Report Type: Report from Study
  Country: AU (occurrence: AU)
  Receive Date: 20150122
  Receipt Date: 20150320
  Transmission Date: 20150721
  Serious: Yes (Life-Threatening, Hospitalization, Other)
  Sender: FDA-Public Use
  Company Number: AU-ROCHE-1523291

PATIENT
  Age: 61 Year
  Sex: Female

DRUGS (1)
  1. ACTEMRA [Suspect]
     Active Substance: TOCILIZUMAB
     Indication: RHEUMATOID ARTHRITIS
     Route: 042
     Dates: start: 20120522

REACTIONS (6)
  - Ear infection [Recovered/Resolved]
  - Pneumonia [Recovered/Resolved]
  - Mastoiditis [Recovered/Resolved]
  - Meningitis [Recovered/Resolved]
  - Malaise [Unknown]
  - Autoimmune neutropenia [Unknown]

NARRATIVE: CASE EVENT DATE: 201501
